FAERS Safety Report 6667620-5 (Version None)
Quarter: 2010Q2

REPORT INFORMATION
  Report Type: 
  Country: None (occurrence: None)
  Receive Date: 20100405
  Receipt Date: 20100322
  Transmission Date: 20101027
  Serious: Yes (Hospitalization)
  Sender: FDA-Public Use
  Company Number: DE-AMGEN-US401766

PATIENT
  Sex: Female

DRUGS (2)
  1. ENBREL [Suspect]
     Indication: PSORIATIC ARTHROPATHY
     Dosage: DOSE AND FREQUENCY UNKNOWN
     Route: 058
     Dates: start: 20070401, end: 20100201
  2. PREDNISOLONE [Concomitant]
     Indication: PSORIATIC ARTHROPATHY
     Route: 048

REACTIONS (7)
  - CONDITION AGGRAVATED [None]
  - DIARRHOEA [None]
  - NAUSEA [None]
  - ORGANISING PNEUMONIA [None]
  - PSORIATIC ARTHROPATHY [None]
  - PYREXIA [None]
  - VOMITING [None]
